FAERS Safety Report 10497898 (Version 6)
Quarter: 2015Q1

REPORT INFORMATION
  Report Type: Spontaneous
  Country: GB (occurrence: GB)
  Receive Date: 20141006
  Receipt Date: 20150217
  Transmission Date: 20150720
  Serious: Yes (Hospitalization)
  Sender: FDA-Public Use
  Company Number: GB-JNJFOC-20140921829

PATIENT
  Age: 8 Year
  Sex: Female
  Weight: 30 kg

DRUGS (1)
  1. VERMOX [Suspect]
     Active Substance: MEBENDAZOLE
     Indication: ENTEROBIASIS
     Dosage: 100 MG/5 ML??DRUG WAS INITIATED IN THE FIRST WEEK OF SEP-2014.
     Route: 048
     Dates: start: 201409, end: 201409

REACTIONS (7)
  - Antibody test positive [Unknown]
  - Coagulopathy [Not Recovered/Not Resolved]
  - Respiratory disorder [Unknown]
  - Acute hepatic failure [Unknown]
  - Malaise [Not Recovered/Not Resolved]
  - Abasia [Unknown]
  - Jaundice [Unknown]

NARRATIVE: CASE EVENT DATE: 20140920
